FAERS Safety Report 5796868-7 (Version None)
Quarter: 2008Q3

REPORT INFORMATION
  Report Type: 
  Country: None (occurrence: None)
  Receive Date: 20080701
  Receipt Date: 20080619
  Transmission Date: 20090109
  Serious: Yes (Death)
  Sender: FDA-Public Use
  Company Number: US-AVENTIS-200810588US

PATIENT
  Sex: Male
  Weight: 119 kg

DRUGS (6)
  1. KETEK [Suspect]
     Indication: BRONCHITIS
     Dosage: DOSE: 1 DOSE
     Route: 048
     Dates: start: 20050124, end: 20050125
  2. LIPITOR [Concomitant]
     Dosage: DOSE: UNK
  3. LASIX [Concomitant]
     Dosage: DOSE: UNK
  4. ZETIA [Concomitant]
     Dosage: DOSE: UNK
  5. MESTINON [Concomitant]
     Dosage: DOSE: UNK
  6. POTASSIUM CHLORIDE [Concomitant]
     Dosage: DOSE: UNK

REACTIONS (7)
  - DIPLOPIA [None]
  - DYSPNOEA [None]
  - MEDICATION ERROR [None]
  - RESPIRATORY ARREST [None]
  - RESPIRATORY FAILURE [None]
  - VISION BLURRED [None]
  - VISUAL IMPAIRMENT [None]
